FAERS Safety Report 5513773-1 (Version None)
Quarter: 2007Q4

REPORT INFORMATION
  Report Type: 
  Country: None (occurrence: None)
  Receive Date: 20071113
  Receipt Date: 20071105
  Transmission Date: 20080405
  Serious: Yes (Other)
  Sender: FDA-Public Use
  Company Number: PHBS2007BR18436

PATIENT
  Age: 26 Year
  Sex: Male
  Weight: 56 kg

DRUGS (2)
  1. TEGRETOL [Suspect]
     Dosage: 10 ML, QHS
     Route: 048
     Dates: start: 19920101, end: 19930101
  2. TEGRETOL [Suspect]
     Dosage: 400 MG, Q48H
     Route: 048
     Dates: start: 19930101

REACTIONS (4)
  - HEAD INJURY [None]
  - LOWER LIMB FRACTURE [None]
  - ROAD TRAFFIC ACCIDENT [None]
  - TREMOR [None]
